FAERS Safety Report 7250773-8 (Version None)
Quarter: 2011Q1

REPORT INFORMATION
  Report Type: 
  Country: None (occurrence: None)
  Receive Date: 20110119
  Receipt Date: 20110112
  Transmission Date: 20110831
  Serious: Yes (Other)
  Sender: FDA-Public Use
  Company Number: 20119922

PATIENT
  Sex: Female

DRUGS (1)
  1. LIORESAL [Suspect]
     Indication: MUSCLE SPASTICITY
     Dosage: SEE B5 MCG,DAILY, INTRATHECAL
     Route: 037

REACTIONS (3)
  - IMPLANT SITE INFECTION [None]
  - IMPLANT SITE ERYTHEMA [None]
  - DEVICE BREAKAGE [None]
